FAERS Safety Report 11397138 (Version 2)
Quarter: 2015Q3

REPORT INFORMATION
  Report Type: Spontaneous
  Country: US (occurrence: US)
  Receive Date: 20150819
  Receipt Date: 20150821
  Transmission Date: 20151125
  Serious: No
  Sender: FDA-Public Use
  Company Number: US-TEVA-585668USA

PATIENT
  Age: 5 Year
  Sex: Female
  Weight: 19.2 kg

DRUGS (4)
  1. FLOVENT [Concomitant]
     Active Substance: FLUTICASONE PROPIONATE
     Indication: ASTHMA
     Route: 065
  2. ALBUTEROL NEBULIZING SOLUTION [Concomitant]
     Indication: ASTHMA
     Route: 065
  3. PROAIR HFA [Suspect]
     Active Substance: ALBUTEROL SULFATE
     Indication: ASTHMA
     Dosage: TWO PUFFS EVERY FOUR TO SIX HOURS PRN
     Route: 065
     Dates: start: 2012
  4. PROAIR RESPICLICK [Suspect]
     Active Substance: ALBUTEROL SULFATE
     Indication: ASTHMA
     Dosage: 2 PUFFS
     Route: 065
     Dates: start: 20150805

REACTIONS (4)
  - Drug administered to patient of inappropriate age [Recovered/Resolved]
  - Device difficult to use [Recovered/Resolved]
  - Drug administered to patient of inappropriate age [Unknown]
  - Underdose [Recovered/Resolved]

NARRATIVE: CASE EVENT DATE: 2012
